FAERS Safety Report 22963102 (Version 4)
Quarter: 2023Q4

REPORT INFORMATION
  Report Type: Spontaneous
  Country: TH (occurrence: TH)
  Receive Date: 20230920
  Receipt Date: 20231005
  Transmission Date: 20240110
  Serious: Yes (Hospitalization, Other)
  Sender: FDA-Public Use
  Company Number: TH-009507513-2309THA004333

PATIENT
  Age: 74 Year
  Sex: Male

DRUGS (1)
  1. KEYTRUDA [Suspect]
     Active Substance: PEMBROLIZUMAB
     Indication: Non-small cell lung cancer
     Dosage: 200 MILLIGRAM, 1ST DOSE
     Route: 042
     Dates: start: 20230831, end: 20230831

REACTIONS (9)
  - Productive cough [Not Recovered/Not Resolved]
  - Depressed level of consciousness [Not Recovered/Not Resolved]
  - Renal function test abnormal [Recovering/Resolving]
  - Nephritis [Recovering/Resolving]
  - Pneumonitis [Recovering/Resolving]
  - White blood cell count increased [Unknown]
  - Palliative care [Unknown]
  - Drug ineffective [Unknown]
  - Rash macular [Recovering/Resolving]

NARRATIVE: CASE EVENT DATE: 20230101
